FAERS Safety Report 24958813 (Version 1)
Quarter: 2025Q1

REPORT INFORMATION
  Report Type: Spontaneous
  Country: JP (occurrence: JP)
  Receive Date: 20250212
  Receipt Date: 20250212
  Transmission Date: 20250408
  Serious: Yes (Hospitalization)
  Sender: SANDOZ
  Company Number: JP-MLMSERVICE-20250203-PI389324-00218-1

PATIENT
  Age: 80 Year
  Sex: Female

DRUGS (3)
  1. METHOTREXATE [Suspect]
     Active Substance: METHOTREXATE
     Route: 065
     Dates: start: 2022, end: 2022
  2. METHOTREXATE [Suspect]
     Active Substance: METHOTREXATE
     Indication: Rheumatoid arthritis
     Route: 065
     Dates: end: 2022
  3. PREDNISOLONE [Suspect]
     Active Substance: PREDNISOLONE
     Indication: Rheumatoid arthritis
     Dosage: 5.000MG QD
     Route: 065

REACTIONS (2)
  - SARS-CoV-2 RNA increased [Recovered/Resolved]
  - Viral vector shedding [Recovered/Resolved]

NARRATIVE: CASE EVENT DATE: 20220901
